FAERS Safety Report 22522756 (Version 2)
Quarter: 2023Q2

REPORT INFORMATION
  Report Type: Spontaneous
  Country: RU (occurrence: RU)
  Receive Date: 20230605
  Receipt Date: 20230623
  Transmission Date: 20230722
  Serious: Yes (Other)
  Sender: FDA-Public Use
  Company Number: RU-002147023-NVSC2023RU126610

PATIENT
  Age: 61 Year
  Sex: Female
  Weight: 75 kg

DRUGS (4)
  1. AMOXICILLIN\CLAVULANATE POTASSIUM [Suspect]
     Active Substance: AMOXICILLIN\CLAVULANATE POTASSIUM
     Indication: Arthritis bacterial
     Dosage: 1000 MG, BID
     Route: 048
     Dates: start: 20230509, end: 20230513
  2. ALLOPURINOL [Concomitant]
     Active Substance: ALLOPURINOL
     Indication: Gout
     Dosage: 100 MG, QD (MANUFACTURED BY PHARMACEUTICAL PLANT EGIS)
     Route: 048
     Dates: start: 20230511, end: 20230516
  3. COLCHICUM [Concomitant]
     Active Substance: COLCHICINE
     Indication: Gout
     Dosage: 0.5 MG, BID
     Route: 048
     Dates: start: 20230511, end: 20230516
  4. LEVOCETIRIZINE [Concomitant]
     Active Substance: LEVOCETIRIZINE
     Indication: Allergy prophylaxis
     Dosage: 10 MG, QD
     Route: 048
     Dates: start: 20230509, end: 20230511

REACTIONS (4)
  - Hyperthermia [Recovered/Resolved]
  - Drug reaction with eosinophilia and systemic symptoms [Recovered/Resolved]
  - Rash maculo-papular [Recovered/Resolved with Sequelae]
  - Pruritus [Recovered/Resolved with Sequelae]

NARRATIVE: CASE EVENT DATE: 20230515
